FAERS Safety Report 12670348 (Version 1)
Quarter: 2016Q3

REPORT INFORMATION
  Report Type: Spontaneous
  Country: MY (occurrence: MY)
  Receive Date: 20160822
  Receipt Date: 20160822
  Transmission Date: 20161109
  Serious: Yes (Other)
  Sender: FDA-Public Use
  Company Number: MY-GLAXOSMITHKLINE-MY2016GSK118398

PATIENT
  Age: 56 Year
  Sex: Female

DRUGS (8)
  1. ? BACLOFEN ORAL [Suspect]
     Active Substance: BACLOFEN
     Indication: MYALGIA
     Dosage: 150 MG, UNK
     Route: 048
  2. VOLTAREN [Suspect]
     Active Substance: DICLOFENAC SODIUM
     Indication: ARTHRALGIA
  3. SUNITON [Suspect]
     Active Substance: ACETAMINOPHEN\ORPHENADRINE CITRATE
     Indication: MYALGIA
     Dosage: 3 DF, QD
     Route: 048
  4. CYANOCOBALAMIN + PYRIDOXINE + THIAMINE [Suspect]
     Active Substance: CYANOCOBALAMIN\PYRIDOXINE\THIAMINE
     Indication: MYALGIA
     Dosage: 3 DF, QD
     Route: 048
  5. AMLODIPINE [Concomitant]
     Active Substance: AMLODIPINE BESYLATE
  6. CYANOCOBALAMIN + PYRIDOXINE + THIAMINE [Suspect]
     Active Substance: CYANOCOBALAMIN\PYRIDOXINE\THIAMINE
     Indication: ARTHRALGIA
  7. SUNITON [Suspect]
     Active Substance: ACETAMINOPHEN\ORPHENADRINE CITRATE
     Indication: ARTHRALGIA
  8. ENALAPRIL [Concomitant]
     Active Substance: ENALAPRIL

REACTIONS (1)
  - Anaphylactic shock [Recovering/Resolving]

NARRATIVE: CASE EVENT DATE: 20150409
